FAERS Safety Report 7774933-2 (Version None)
Quarter: 2011Q3

REPORT INFORMATION
  Report Type: 
  Country: None (occurrence: None)
  Receive Date: 20110923
  Receipt Date: 20110915
  Transmission Date: 20111222
  Serious: Yes (Hospitalization)
  Sender: FDA-Public Use
  Company Number: US-PFIZER INC-2011220037

PATIENT
  Age: 37 Year
  Sex: Female

DRUGS (5)
  1. AMLODIPINE BESILATE [Suspect]
  2. LOXAPINE [Suspect]
  3. CARBAMAZEPINE [Suspect]
  4. TRAMADOL [Suspect]
  5. WARFARIN [Suspect]

REACTIONS (2)
  - CARDIOGENIC SHOCK [None]
  - OVERDOSE [None]
